FAERS Safety Report 19953054 (Version 1)
Quarter: 2021Q4

REPORT INFORMATION
  Report Type: Spontaneous
  Country: US (occurrence: US)
  Receive Date: 20211013
  Receipt Date: 20211013
  Transmission Date: 20220303
  Serious: No
  Sender: FDA-Public Use
  Company Number: None

PATIENT
  Age: 39 Year
  Sex: Female
  Weight: 51.75 kg

DRUGS (2)
  1. DOXYCYCLINE HYCLATE [Suspect]
     Active Substance: DOXYCYCLINE HYCLATE
     Indication: Hysteroscopy
     Route: 048
     Dates: start: 20211007, end: 20211012
  2. VITAMINS [Concomitant]
     Active Substance: VITAMINS

REACTIONS (5)
  - Mood swings [None]
  - Night sweats [None]
  - Nausea [None]
  - Retching [None]
  - Oesophageal discomfort [None]

NARRATIVE: CASE EVENT DATE: 20211012
